FAERS Safety Report 5650140-4 (Version None)
Quarter: 2008Q1

REPORT INFORMATION
  Report Type: 
  Country: None (occurrence: None)
  Receive Date: 20080131
  Receipt Date: 20071206
  Transmission Date: 20080703
  Serious: No
  Sender: FDA-Public Use
  Company Number: US200712001489

PATIENT
  Age: 38 Year
  Sex: Female

DRUGS (4)
  1. BYETTA [Suspect]
     Indication: TYPE 2 DIABETES MELLITUS
     Dosage: 5 UG, 2/D, SUBCUTANEOUS; 10 UG, 2/D, SUBCUTANEOUS
     Route: 058
     Dates: start: 20071023, end: 20071120
  2. BYETTA [Suspect]
     Indication: TYPE 2 DIABETES MELLITUS
     Dosage: 5 UG, 2/D, SUBCUTANEOUS; 10 UG, 2/D, SUBCUTANEOUS
     Route: 058
     Dates: start: 20071121
  3. METFORMIN HCL [Concomitant]
  4. ASPIRIN [Concomitant]

REACTIONS (6)
  - BLOOD GLUCOSE INCREASED [None]
  - DECREASED APPETITE [None]
  - INJECTION SITE BRUISING [None]
  - INJECTION SITE EXTRAVASATION [None]
  - INJECTION SITE URTICARIA [None]
  - NAUSEA [None]
